FAERS Safety Report 18612476 (Version 1)
Quarter: 2020Q4

REPORT INFORMATION
  Report Type: Spontaneous
  Country: JP (occurrence: JP)
  Receive Date: 20201214
  Receipt Date: 20201214
  Transmission Date: 20210114
  Serious: Yes (Hospitalization, Other)
  Sender: FDA-Public Use
  Company Number: JP-009507513-2005JPN001791J

PATIENT
  Age: 56 Year
  Sex: Male
  Weight: 45 kg

DRUGS (4)
  1. CARBOPLATIN. [Concomitant]
     Active Substance: CARBOPLATIN
     Indication: LUNG ADENOCARCINOMA STAGE IV
     Dosage: 310 , EVERY 3 WEEKS
     Route: 041
     Dates: start: 20190606, end: 20190817
  2. KEYTRUDA [Suspect]
     Active Substance: PEMBROLIZUMAB
     Indication: LUNG ADENOCARCINOMA STAGE IV
     Dosage: 200 MILLIGRAM, EVERY 3 WEEKS
     Route: 041
     Dates: start: 20190606, end: 20200613
  3. ALIMTA [Concomitant]
     Active Substance: PEMETREXED DISODIUM
     Indication: LUNG ADENOCARCINOMA STAGE IV
     Dosage: 730 MILLIGRAM, EVERY 3 WEEKS
     Route: 041
     Dates: start: 20190606, end: 20200704
  4. ALIMTA [Concomitant]
     Active Substance: PEMETREXED DISODIUM
     Dosage: 730 MILLIGRAM, EVERY 3 WEEKS
     Route: 041
     Dates: start: 20200808, end: 20200808

REACTIONS (5)
  - Immune-mediated arthritis [Recovered/Resolved]
  - Immune-mediated arthritis [Unknown]
  - Glucose urine present [Recovered/Resolved]
  - Blood glucose increased [Recovered/Resolved]
  - Immune-mediated arthritis [Recovered/Resolved]

NARRATIVE: CASE EVENT DATE: 20200411
